FAERS Safety Report 16432205 (Version 1)
Quarter: 2019Q2

REPORT INFORMATION
  Report Type: Spontaneous
  Country: US (occurrence: US)
  Receive Date: 20190614
  Receipt Date: 20190614
  Transmission Date: 20190711
  Serious: Yes (Other)
  Sender: FDA-Public Use
  Company Number: None

PATIENT
  Age: 57 Year
  Sex: Male

DRUGS (7)
  1. ALVESCO 160MCG/ACT AERS [Concomitant]
  2. HUMIRA [Suspect]
     Active Substance: ADALIMUMAB
     Indication: CROHN^S DISEASE
     Dosage: ?          OTHER FREQUENCY:EVERY 14 DAYS;?
     Route: 058
     Dates: start: 20171130, end: 20190613
  3. AMLODIPINE BESYLATE 5MG TAB [Concomitant]
     Active Substance: AMLODIPINE BESYLATE
  4. XOLAIR 150MG SOLR [Concomitant]
  5. LEVALBUTEROL TART 45 AERO [Concomitant]
  6. VITAMIN D (ERGO) 50,000 CAPS [Concomitant]
  7. POTASSIUM CHLORIDE CRYS ER 20 TBCR [Concomitant]

REACTIONS (2)
  - Hypoaesthesia [None]
  - Neuropathy peripheral [None]

NARRATIVE: CASE EVENT DATE: 20190613
